FAERS Safety Report 8984180 (Version 1)
Quarter: 2012Q4

REPORT INFORMATION
  Report Type: 
  Country: BR (occurrence: BR)
  Receive Date: 20121226
  Receipt Date: 20121226
  Transmission Date: 20130627
  Serious: Yes (Other)
  Sender: FDA-Public Use
  Company Number: BR-AMGEN-BRASP2012082664

PATIENT
  Age: 63 Year
  Sex: Female
  Weight: 67.98 kg

DRUGS (5)
  1. ENBREL [Suspect]
     Indication: RHEUMATOID ARTHRITIS
     Dosage: 50 mg, once weekly
     Route: 058
     Dates: start: 201209, end: 20121124
  2. CLEXANE [Concomitant]
     Dosage: UNK
  3. ENALAPRIL [Concomitant]
     Indication: HYPERTENSION
     Dosage: UNK
  4. PARACETAMOL [Concomitant]
     Dosage: UNK
  5. KETOPROFEN [Concomitant]
     Dosage: UNK

REACTIONS (1)
  - Bone disorder [Unknown]
